FAERS Safety Report 23462315 (Version 1)
Quarter: 2024Q1

REPORT INFORMATION
  Report Type: Spontaneous
  Country: GB (occurrence: GB)
  Receive Date: 20240131
  Receipt Date: 20240131
  Transmission Date: 20240409
  Serious: Yes (Other)
  Sender: FDA-Public Use
  Company Number: None

PATIENT
  Age: 50 Year
  Sex: Female
  Weight: 67 kg

DRUGS (7)
  1. METHOTREXATE [Suspect]
     Active Substance: METHOTREXATE
     Indication: Product used for unknown indication
     Dosage: 15 MG, QW
     Route: 065
     Dates: start: 20240117
  2. AMOXICILLIN [Concomitant]
     Active Substance: AMOXICILLIN
     Indication: Product used for unknown indication
     Dosage: 1 DF, TID
     Route: 065
     Dates: start: 20231128, end: 20231203
  3. DOXYCYCLINE [Concomitant]
     Active Substance: DOXYCYCLINE
     Indication: Cough
     Dosage: UNK,ADULTS, NOT IN PREGNANC
     Route: 065
     Dates: start: 20231212, end: 20231217
  4. OTOMIZE [Concomitant]
     Indication: Product used for unknown indication
     Dosage: 1 DF, TID, SPRAY TO AFFE
     Route: 065
     Dates: start: 20231221, end: 20231228
  5. ALBUTEROL [Concomitant]
     Active Substance: ALBUTEROL
     Indication: Product used for unknown indication
     Dosage: 2 DF, PRN AS NECESSARY
     Route: 055
     Dates: start: 20230922
  6. SERTRALINE [Concomitant]
     Active Substance: SERTRALINE HYDROCHLORIDE
     Indication: Product used for unknown indication
     Dosage: 1 DF, QD
     Route: 065
     Dates: start: 20230726
  7. ACETAMINOPHEN\CODEINE PHOSPHATE [Concomitant]
     Active Substance: ACETAMINOPHEN\CODEINE PHOSPHATE
     Indication: Product used for unknown indication
     Dosage: UNK UNK, PRN,TAKE 1 OR 2 4 TIMES/DAY AS REQUIRED
     Route: 065
     Dates: start: 20230726

REACTIONS (8)
  - Oropharyngeal pain [Unknown]
  - Rhinorrhoea [Unknown]
  - Anxiety [Unknown]
  - Hypersensitivity [Recovering/Resolving]
  - Chest discomfort [Unknown]
  - Cough [Unknown]
  - Headache [Unknown]
  - Pruritus [Unknown]

NARRATIVE: CASE EVENT DATE: 20240122
